FAERS Safety Report 8560970-7 (Version None)
Quarter: 2012Q3

REPORT INFORMATION
  Report Type: 
  Country: None (occurrence: None)
  Receive Date: 20120727
  Receipt Date: 20120727
  Transmission Date: 20120928
  Serious: Yes (Hospitalization)
  Sender: FDA-Public Use
  Company Number: None

PATIENT
  Age: 90 Year
  Sex: Female
  Weight: 70 kg

DRUGS (9)
  1. TYLENOL ARTHRITIS [Concomitant]
  2. LIPITOR [Concomitant]
  3. LOVAZA [Concomitant]
  4. DIAZEPAM [Concomitant]
  5. ASPIRIN [Suspect]
     Dosage: 81MG DAILY PO CHRONIC
     Route: 048
  6. M.V.I. [Concomitant]
  7. PRILOSEC [Concomitant]
  8. DIOVAN HCT [Concomitant]
  9. DILTIAZEM [Concomitant]

REACTIONS (4)
  - ANAEMIA [None]
  - GASTRIC ULCER [None]
  - GASTROINTESTINAL HAEMORRHAGE [None]
  - ENCEPHALOPATHY [None]
